FAERS Safety Report 10168095 (Version 1)
Quarter: 2014Q2

REPORT INFORMATION
  Report Type: Spontaneous
  Country: US (occurrence: US)
  Receive Date: 20140512
  Receipt Date: 20140512
  Transmission Date: 20141212
  Serious: Yes (Other)
  Sender: FDA-Public Use
  Company Number: US-ACTAVIS-2014-09814

PATIENT
  Age: 12 Year
  Sex: Male

DRUGS (2)
  1. SERTRALINE HYDROCHLORIDE (WATSON LABORATORIES) [Suspect]
     Indication: DEPRESSED MOOD
     Dosage: 50 MG, UNK
     Route: 065
  2. SERTRALINE HYDROCHLORIDE (WATSON LABORATORIES) [Suspect]
     Dosage: 25 MG, UNK
     Route: 065

REACTIONS (1)
  - Serotonin syndrome [Recovered/Resolved]
